FAERS Safety Report 15473929 (Version 1)
Quarter: 2018Q4

REPORT INFORMATION
  Report Type: Spontaneous
  Country: US (occurrence: US)
  Receive Date: 20181008
  Receipt Date: 20181008
  Transmission Date: 20190205
  Serious: No
  Sender: FDA-Public Use
  Company Number: US-SA-2018SA272619

PATIENT
  Age: 82 Year
  Sex: Female

DRUGS (1)
  1. LANTUS [Suspect]
     Active Substance: INSULIN GLARGINE
     Dosage: 50 IU, QD
     Route: 065

REACTIONS (5)
  - Device issue [Unknown]
  - Product dose omission [Unknown]
  - Pigmentation disorder [Not Recovered/Not Resolved]
  - Limb discomfort [Unknown]
  - Lower limb fracture [Unknown]
